FAERS Safety Report 23027281 (Version 4)
Quarter: 2023Q4

REPORT INFORMATION
  Report Type: Report from Study
  Country: CA (occurrence: CA)
  Receive Date: 20231004
  Receipt Date: 20231127
  Transmission Date: 20240110
  Serious: Yes (Other)
  Sender: FDA-Public Use
  Company Number: CA-OTSUKA-2023_024952

PATIENT
  Sex: Male

DRUGS (3)
  1. TOLVAPTAN [Suspect]
     Active Substance: TOLVAPTAN
     Indication: Congenital cystic kidney disease
     Dosage: 45 MG, QD (IN THE MORNING)
     Route: 048
  2. TOLVAPTAN [Suspect]
     Active Substance: TOLVAPTAN
     Dosage: 15 MG, QD (IN THE EVENING)
     Route: 048
  3. TOLVAPTAN [Suspect]
     Active Substance: TOLVAPTAN
     Dosage: UNK (RESTARTED)
     Route: 065
     Dates: start: 20231101, end: 20231117

REACTIONS (10)
  - Blood glucose decreased [Unknown]
  - Asthenia [Unknown]
  - Pollakiuria [Not Recovered/Not Resolved]
  - Gallbladder disorder [Unknown]
  - Urine output decreased [Unknown]
  - Blood pressure increased [Unknown]
  - Nausea [Unknown]
  - Polydipsia [Unknown]
  - Decreased appetite [Unknown]
  - Polyuria [Unknown]
